FAERS Safety Report 7056279-3 (Version None)
Quarter: 2010Q4

REPORT INFORMATION
  Report Type: 
  Country: None (occurrence: None)
  Receive Date: 20101018
  Receipt Date: 20101013
  Transmission Date: 20110411
  Serious: Yes (Other)
  Sender: FDA-Public Use
  Company Number: 2010SP054775

PATIENT
  Age: 75 Year
  Sex: Female
  Weight: 60 kg

DRUGS (1)
  1. ORMIGREIN (ORMIGREIN /01755201/) [Suspect]
     Indication: MIGRAINE PROPHYLAXIS
     Dosage: PO
     Route: 048

REACTIONS (5)
  - CATARACT OPERATION [None]
  - DRUG DEPENDENCE [None]
  - HOMICIDAL IDEATION [None]
  - OFF LABEL USE [None]
  - WRONG TECHNIQUE IN DRUG USAGE PROCESS [None]
